FAERS Safety Report 4925406-3 (Version None)
Quarter: 2006Q1

REPORT INFORMATION
  Report Type: 
  Country: None (occurrence: None)
  Receive Date: 20060228
  Receipt Date: 20050215
  Transmission Date: 20060701
  Serious: No
  Sender: FDA-Public Use
  Company Number: US-GLAXOSMITHKLINE-A0545695A

PATIENT
  Age: 35 Year
  Sex: Female
  Weight: 77.3 kg

DRUGS (2)
  1. LAMICTAL [Suspect]
     Indication: EPILEPSY
  2. DEPAKOTE [Concomitant]
     Route: 048
     Dates: end: 20050124

REACTIONS (3)
  - JOINT SWELLING [None]
  - RASH MORBILLIFORM [None]
  - URTICARIA [None]
